FAERS Safety Report 6133132-0 (Version None)
Quarter: 2009Q1

REPORT INFORMATION
  Report Type: 
  Country: None (occurrence: None)
  Receive Date: 20090326
  Receipt Date: 20090316
  Transmission Date: 20090719
  Serious: Yes (Hospitalization)
  Sender: FDA-Public Use
  Company Number: SE-PFIZER INC-2009183853

PATIENT

DRUGS (9)
  1. SALURES [Suspect]
     Dosage: 5 MG, 1X/DAY
     Route: 048
     Dates: end: 20081216
  2. ALFADIL [Suspect]
     Dosage: 4 MG, 1X/DAY
     Route: 048
     Dates: end: 20081216
  3. ATACAND [Suspect]
     Dosage: 8 MG, 1X/DAY
     Route: 048
     Dates: end: 20081216
  4. PHOSPHORAL [Suspect]
     Indication: GASTRIC LAVAGE
     Dosage: UNK
     Route: 048
     Dates: start: 20081214, end: 20081215
  5. FOSAMAX [Concomitant]
     Dosage: 70 MG, WEEKLY
     Route: 048
  6. CALCICHEW-D3 [Concomitant]
     Dosage: UNK
     Route: 048
  7. LEVOTHYROXINE SODIUM [Concomitant]
     Dosage: 50 UG, UNK
     Route: 048
  8. NITROMEX [Concomitant]
     Dosage: 0.25 MG, UNK
     Route: 048
  9. DURBIS RETARD [Concomitant]
     Dosage: 250 MG, UNK
     Route: 048

REACTIONS (2)
  - BLOOD CREATININE INCREASED [None]
  - HYPOKALAEMIA [None]
